FAERS Safety Report 7948943-6 (Version None)
Quarter: 2011Q4

REPORT INFORMATION
  Report Type: 
  Country: None (occurrence: None)
  Receive Date: 20111130
  Receipt Date: 20111124
  Transmission Date: 20120403
  Serious: Yes (Hospitalization)
  Sender: FDA-Public Use
  Company Number: PHHY2011VE104080

PATIENT
  Sex: Female

DRUGS (10)
  1. LIPITOR [Concomitant]
     Indication: BLOOD CHOLESTEROL
  2. ENALAPRIL MALEATE [Concomitant]
     Indication: HYPERTENSION
  3. ZOLEDRONOC ACID [Suspect]
     Indication: OSTEOPOROSIS
     Dosage: UNK
     Route: 042
     Dates: start: 20110901
  4. DABIGATRAN ETEXILATE [Concomitant]
     Indication: CARDIAC DISORDER
  5. PLAVIX [Concomitant]
  6. TRAMADOL HCL [Concomitant]
     Indication: PAIN
  7. CALCIUM CARBONATE [Concomitant]
  8. LASIX [Concomitant]
  9. ARCALION [Concomitant]
  10. LOVAZA [Concomitant]

REACTIONS (1)
  - NECROSIS [None]
